FAERS Safety Report 24056398 (Version 3)
Quarter: 2024Q3

REPORT INFORMATION
  Report Type: Spontaneous
  Country: JP (occurrence: JP)
  Receive Date: 20240705
  Receipt Date: 20240909
  Transmission Date: 20241016
  Serious: Yes (Hospitalization, Other)
  Sender: TAKEDA
  Company Number: JP-TAKEDA-2024TUS067829

PATIENT
  Age: 36 Year
  Sex: Male

DRUGS (3)
  1. LIALDA [Suspect]
     Active Substance: MESALAMINE
     Indication: Colitis ulcerative
     Dosage: 4800 MILLIGRAM, QD
     Route: 048
  2. AZATHIOPRINE [Suspect]
     Active Substance: AZATHIOPRINE
     Indication: Colitis ulcerative
     Dosage: 50 MILLIGRAM, QD
     Route: 065
     Dates: start: 2022, end: 2022
  3. AZATHIOPRINE [Suspect]
     Active Substance: AZATHIOPRINE
     Dosage: 100 MILLIGRAM, QD
     Route: 065
     Dates: start: 2022, end: 2023

REACTIONS (3)
  - Anal abscess [Unknown]
  - Colitis ulcerative [Unknown]
  - Alopecia [Unknown]

NARRATIVE: CASE EVENT DATE: 20211101
